FAERS Safety Report 7522615-4 (Version None)
Quarter: 2011Q2

REPORT INFORMATION
  Report Type: 
  Country: None (occurrence: None)
  Receive Date: 20110603
  Receipt Date: 20110525
  Transmission Date: 20111010
  Serious: Yes (Hospitalization, Other)
  Sender: FDA-Public Use
  Company Number: GB-AMGEN-GBRSP2011015872

PATIENT
  Age: 64 Year
  Sex: Female

DRUGS (11)
  1. OMEPRAZOLE [Concomitant]
  2. ATORVASTATIN [Concomitant]
  3. DESLORATADINE [Concomitant]
  4. CELECOXIB [Concomitant]
     Dosage: 200 MG, 1X/DAY
     Route: 048
  5. GABAPENTIN [Concomitant]
  6. TEMAZEPAM [Concomitant]
  7. ORLISTAT [Concomitant]
  8. ACETAMINOPHEN [Concomitant]
  9. LEFLUNOMIDE [Concomitant]
     Indication: RHEUMATOID ARTHRITIS
     Dosage: 20 MG, 1X/DAY
     Route: 048
     Dates: start: 20080801
  10. CODEINE SULFATE [Concomitant]
  11. ENBREL [Suspect]
     Indication: RHEUMATOID ARTHRITIS
     Dosage: 25 MG, 2X/WEEK
     Route: 058
     Dates: start: 20100502

REACTIONS (2)
  - MENINGIOMA BENIGN [None]
  - ENCEPHALITIS [None]
